FAERS Safety Report 12161129 (Version 2)
Quarter: 2016Q1

REPORT INFORMATION
  Report Type: Spontaneous
  Country: IL (occurrence: IL)
  Receive Date: 20160308
  Receipt Date: 20160317
  Transmission Date: 20160526
  Serious: Yes (Other)
  Sender: FDA-Public Use
  Company Number: IL-BAYER-2016-041506

PATIENT
  Age: 25 Year
  Sex: Female

DRUGS (2)
  1. YAZ PLUS [Suspect]
     Active Substance: DROSPIRENONE\ETHINYL ESTRADIOL
     Dosage: UNK
     Route: 048
     Dates: start: 201510, end: 20160306
  2. YASMIN [Suspect]
     Active Substance: DROSPIRENONE\ETHINYL ESTRADIOL
     Dosage: UNK
     Route: 048
     Dates: start: 2013, end: 201510

REACTIONS (2)
  - Blood cortisol increased [None]
  - Blood cholesterol increased [None]

NARRATIVE: CASE EVENT DATE: 201508
